FAERS Safety Report 25990288 (Version 1)
Quarter: 2025Q4

REPORT INFORMATION
  Report Type: Other
  Country: IN (occurrence: IN)
  Receive Date: 20251103
  Receipt Date: 20251103
  Transmission Date: 20260118
  Serious: Yes (Hospitalization, Other)
  Sender: APPCO PHARMA LLC
  Company Number: IN-Appco Pharma LLC-2187780

PATIENT
  Age: 61 Year
  Sex: Male

DRUGS (1)
  1. NITROFURANTOIN [Suspect]
     Active Substance: NITROFURANTOIN
     Indication: Dysuria

REACTIONS (1)
  - Cutaneous vasculitis [Recovered/Resolved]
